FAERS Safety Report 25248401 (Version 2)
Quarter: 2025Q2

REPORT INFORMATION
  Report Type: Spontaneous
  Country: US (occurrence: None)
  Receive Date: 20250429
  Receipt Date: 20250613
  Transmission Date: 20250716
  Serious: No
  Sender: Alvotech
  Company Number: US-ALVOTECHPMS-2025-ALVOTECHPMS-003833

PATIENT
  Sex: Male

DRUGS (1)
  1. USTEKINUMAB-AEKN [Suspect]
     Active Substance: USTEKINUMAB-AEKN
     Indication: Product used for unknown indication

REACTIONS (2)
  - Wrong technique in device usage process [Unknown]
  - Fear of injection [Unknown]
